FAERS Safety Report 15197737 (Version 1)
Quarter: 2018Q3

REPORT INFORMATION
  Report Type: Spontaneous
  Country: PR (occurrence: PR)
  Receive Date: 20180725
  Receipt Date: 20180725
  Transmission Date: 20181010
  Serious: No
  Sender: FDA-Public Use
  Company Number: PR-ABBVIE-17S-131-2179914-00

PATIENT
  Age: 14 Year
  Sex: Female
  Weight: 52.21 kg

DRUGS (6)
  1. IODINE. [Concomitant]
     Active Substance: IODINE
     Indication: SUPPLEMENTATION THERAPY
     Dates: start: 2017
  2. VITAMIN D [Concomitant]
     Active Substance: CHOLECALCIFEROL
     Indication: SUPPLEMENTATION THERAPY
     Dates: start: 2017
  3. ZYRTEC [Concomitant]
     Active Substance: CETIRIZINE HYDROCHLORIDE
     Indication: HYPERSENSITIVITY
     Route: 048
  4. L?LYSINE MONOHYDRATE [Concomitant]
     Indication: SUPPLEMENTATION THERAPY
     Dates: start: 2017
  5. JUICE PLUS [Concomitant]
     Active Substance: DIETARY SUPPLEMENT
     Indication: SUPPLEMENTATION THERAPY
     Dates: start: 2017
  6. SYNTHROID [Suspect]
     Active Substance: LEVOTHYROXINE SODIUM
     Indication: AUTOIMMUNE THYROIDITIS
     Route: 048
     Dates: start: 201705

REACTIONS (1)
  - Hordeolum [Recovering/Resolving]

NARRATIVE: CASE EVENT DATE: 20171124
